FAERS Safety Report 9262311 (Version 2)
Quarter: 2013Q3

REPORT INFORMATION
  Report Type: Other
  Country: FR (occurrence: FR)
  Receive Date: 20130430
  Receipt Date: 20130830
  Transmission Date: 20140515
  Serious: Yes (Other)
  Sender: FDA-Public Use
  Company Number: FR-SUN PHARMACEUTICAL INDUSTRIES LTD-2013SUN00530

PATIENT
  Age: 21 Year
  Sex: Female

DRUGS (3)
  1. PANTOPRAZOLE SUN 40 MG POUDRE POUR SOLUTION INJECTABLE [Suspect]
     Indication: ELECTROLYTE IMBALANCE
     Dosage: UNK
     Route: 042
     Dates: start: 201211, end: 201211
  2. PARACETAMOL (PAN PHARMA) [Suspect]
     Indication: ELECTROLYTE IMBALANCE
     Dosage: UNK
     Route: 042
     Dates: start: 201211, end: 201211
  3. POLYIONIQUE G MACO-PHARMA [Suspect]
     Indication: ELECTROLYTE IMBALANCE
     Dosage: UNK
     Route: 042
     Dates: start: 201211, end: 201211

REACTIONS (2)
  - Skin necrosis [Not Recovered/Not Resolved]
  - Munchausen^s syndrome [Unknown]
